FAERS Safety Report 9452838 (Version 1)
Quarter: 2013Q3

REPORT INFORMATION
  Report Type: Spontaneous
  Country: FR (occurrence: FR)
  Receive Date: 20130812
  Receipt Date: 20130812
  Transmission Date: 20140515
  Serious: Yes (Other)
  Sender: FDA-Public Use
  Company Number: FR-ASTRAZENECA-2013SE61197

PATIENT
  Age: 29 Year
  Sex: Female

DRUGS (4)
  1. CRESTOR [Suspect]
     Indication: HYPERCHOLESTEROLAEMIA
     Route: 048
     Dates: start: 20120516, end: 20121212
  2. CRESTOR [Suspect]
     Indication: HYPERCHOLESTEROLAEMIA
     Route: 048
     Dates: start: 20121212
  3. METFORMIN [Suspect]
     Indication: TYPE 2 DIABETES MELLITUS
     Route: 048
     Dates: start: 20130322, end: 20130626
  4. ATRIPLA [Suspect]
     Indication: HIV INFECTION
     Dosage: 600/200/245 MG, DAILY
     Route: 048
     Dates: start: 20111001, end: 20130724

REACTIONS (7)
  - Fall [Unknown]
  - Vomiting [Unknown]
  - Nausea [Unknown]
  - Dizziness [Unknown]
  - Abnormal behaviour [Unknown]
  - Nightmare [Unknown]
  - Type 2 diabetes mellitus [Unknown]
